FAERS Safety Report 14363295 (Version 1)
Quarter: 2018Q1

REPORT INFORMATION
  Report Type: Spontaneous
  Country: US (occurrence: US)
  Receive Date: 20180105
  Receipt Date: 20180105
  Transmission Date: 20180509
  Serious: Yes (Hospitalization)
  Sender: FDA-Public Use
  Company Number: None

PATIENT
  Age: 85 Year
  Sex: Female

DRUGS (3)
  1. TOBRAMYCIN AKORN [Suspect]
     Active Substance: TOBRAMYCIN
     Indication: BRONCHIECTASIS
     Dosage: 5ML VIA NEBULIZER Q 12 HOURS INHALATION
     Route: 055
     Dates: start: 201702
  2. PROLOSEC [Concomitant]
  3. ALBUTEROL. [Concomitant]
     Active Substance: ALBUTEROL

REACTIONS (1)
  - Bronchitis [None]

NARRATIVE: CASE EVENT DATE: 20171128
